FAERS Safety Report 12578721 (Version 2)
Quarter: 2016Q3

REPORT INFORMATION
  Report Type: Spontaneous
  Country: IN (occurrence: IN)
  Receive Date: 20160721
  Receipt Date: 20160818
  Transmission Date: 20161109
  Serious: Yes (Other)
  Sender: FDA-Public Use
  Company Number: IN-ROCHE-1796762

PATIENT

DRUGS (1)
  1. AVASTIN [Suspect]
     Active Substance: BEVACIZUMAB
     Indication: PRODUCT USED FOR UNKNOWN INDICATION
     Dosage: STRENGTH: AVASTIN VIAL 100 MG/4ML
     Route: 050

REACTIONS (3)
  - Eye infection [Recovered/Resolved]
  - Off label use [Unknown]
  - Suspected transmission of an infectious agent via product [Unknown]
